FAERS Safety Report 8188547-6 (Version None)
Quarter: 2012Q1

REPORT INFORMATION
  Report Type: 
  Country: None (occurrence: None)
  Receive Date: 20120306
  Receipt Date: 20120304
  Transmission Date: 20120608
  Serious: Yes (Death, Other)
  Sender: FDA-Public Use
  Company Number: PHHY2012MT018199

PATIENT
  Age: 24 Year
  Sex: Female

DRUGS (3)
  1. EXJADE [Suspect]
     Indication: IRON OVERLOAD
     Dosage: 20 MG/KG/DAY
     Dates: start: 20110301
  2. IMODIUM [Concomitant]
  3. EXJADE [Suspect]
     Dosage: 30 MG/KG/DAY
     Dates: start: 20110901

REACTIONS (9)
  - CARDIOGENIC SHOCK [None]
  - DIARRHOEA [None]
  - GASTROENTERITIS VIRAL [None]
  - BLOOD PRESSURE DECREASED [None]
  - DEPRESSED LEVEL OF CONSCIOUSNESS [None]
  - VOMITING [None]
  - RENAL FAILURE ACUTE [None]
  - PULMONARY OEDEMA [None]
  - ASTHENIA [None]
